FAERS Safety Report 14294877 (Version 1)
Quarter: 2017Q4

REPORT INFORMATION
  Report Type: Spontaneous
  Country: US (occurrence: US)
  Receive Date: 20171218
  Receipt Date: 20171218
  Transmission Date: 20180321
  Serious: No
  Sender: FDA-Public Use
  Company Number: US-AUROBINDO-AUR-APL-2017-42482

PATIENT
  Sex: Male
  Weight: 69.84 kg

DRUGS (4)
  1. ATOMOXETINE CAPSULES USP 80 MG [Suspect]
     Active Substance: ATOMOXETINE
     Indication: ATTENTION DEFICIT/HYPERACTIVITY DISORDER
     Dosage: UNK, ONCE A DAY
     Route: 048
     Dates: start: 20170712, end: 20170928
  2. SIMVASTATIN. [Concomitant]
     Active Substance: SIMVASTATIN
     Indication: BLOOD CHOLESTEROL
     Dosage: 20 MG, ONCE AT NIGHT
  3. METOPROLOL. [Concomitant]
     Active Substance: METOPROLOL
     Indication: BLOOD PRESSURE MEASUREMENT
     Dosage: 25 MG, ONCE IN THE MORNING
     Route: 065
  4. BABY                               /00042702/ [Concomitant]
     Indication: PROPHYLAXIS
     Dosage: 81 MG, ONCE A DAY
     Route: 065

REACTIONS (8)
  - Personality change [Not Recovered/Not Resolved]
  - Psychiatric symptom [Not Recovered/Not Resolved]
  - Communication disorder [Not Recovered/Not Resolved]
  - Product substitution issue [Not Recovered/Not Resolved]
  - Impaired work ability [Unknown]
  - Mood altered [Unknown]
  - Drug ineffective [Not Recovered/Not Resolved]
  - Headache [Unknown]
